FAERS Safety Report 22661464 (Version 1)
Quarter: 2023Q2

REPORT INFORMATION
  Report Type: Spontaneous
  Country: US (occurrence: US)
  Receive Date: 20230630
  Receipt Date: 20230630
  Transmission Date: 20230722
  Serious: No
  Sender: FDA-Public Use
  Company Number: US-JAZZ PHARMACEUTICALS-2022-US-036739

PATIENT
  Age: 14 Month
  Sex: Male

DRUGS (12)
  1. EPIDIOLEX [Suspect]
     Active Substance: CANNABIDIOL
     Indication: Paroxysmal sympathetic hyperactivity
     Dosage: 2 MILLIGRAM/KILOGRAM
  2. EPIDIOLEX [Suspect]
     Active Substance: CANNABIDIOL
     Dosage: 5 MILLIGRAM/KILOGRAM
  3. PRECEDEX [Concomitant]
     Active Substance: DEXMEDETOMIDINE HYDROCHLORIDE
     Indication: Paroxysmal sympathetic hyperactivity
  4. METHADONE [Concomitant]
     Active Substance: METHADONE HYDROCHLORIDE
     Indication: Paroxysmal sympathetic hyperactivity
  5. DIAZEPAM [Concomitant]
     Active Substance: DIAZEPAM
     Indication: Paroxysmal sympathetic hyperactivity
  6. LORAZEPAM [Concomitant]
     Active Substance: LORAZEPAM
     Indication: Paroxysmal sympathetic hyperactivity
  7. CLONIDINE [Concomitant]
     Active Substance: CLONIDINE
     Indication: Paroxysmal sympathetic hyperactivity
  8. BACLOFEN [Concomitant]
     Active Substance: BACLOFEN
     Indication: Paroxysmal sympathetic hyperactivity
  9. BROMOCRIPTINE [Concomitant]
     Active Substance: BROMOCRIPTINE
     Indication: Paroxysmal sympathetic hyperactivity
  10. PROPRANOLOL [Concomitant]
     Active Substance: PROPRANOLOL HYDROCHLORIDE
     Indication: Paroxysmal sympathetic hyperactivity
  11. GABAPENTIN [Concomitant]
     Active Substance: GABAPENTIN
     Indication: Paroxysmal sympathetic hyperactivity
  12. MELATONIN [Concomitant]
     Active Substance: MELATONIN
     Indication: Paroxysmal sympathetic hyperactivity

REACTIONS (1)
  - Off label use [Unknown]
